FAERS Safety Report 23416385 (Version 3)
Quarter: 2024Q3

REPORT INFORMATION
  Report Type: Spontaneous
  Country: JP (occurrence: JP)
  Receive Date: 20240118
  Receipt Date: 20240925
  Transmission Date: 20241017
  Serious: No
  Sender: PFIZER
  Company Number: JP-PFIZER INC-202300454017

PATIENT
  Sex: Female
  Weight: 20.6 kg

DRUGS (1)
  1. NGENLA [Suspect]
     Active Substance: SOMATROGON-GHLA
     Dosage: 13.6 MG, ONCE A WEEK
     Route: 058

REACTIONS (1)
  - Injection site pain [Unknown]
